FAERS Safety Report 4300858-0 (Version None)
Quarter: 2004Q1

REPORT INFORMATION
  Report Type: 
  Country: None (occurrence: None)
  Receive Date: 20040220
  Receipt Date: 20020513
  Transmission Date: 20041129
  Serious: Yes (Hospitalization, Other)
  Sender: FDA-Public Use
  Company Number: WAES 0205USA01618

PATIENT
  Age: 59 Year
  Sex: Female
  Weight: 100 kg

DRUGS (5)
  1. NITROGLYCERIN [Concomitant]
  2. VIOXX [Suspect]
     Indication: ARTHRITIS
     Route: 048
     Dates: start: 20000101
  3. VIOXX [Suspect]
     Route: 048
     Dates: start: 20010412
  4. TOLINASE [Concomitant]
     Indication: DIABETES MELLITUS
  5. VERAPAMIL [Concomitant]
     Indication: HYPERTENSION

REACTIONS (23)
  - BACK PAIN [None]
  - BLOOD PRESSURE INCREASED [None]
  - CHEST PAIN [None]
  - CORONARY ARTERY DISEASE [None]
  - DRUG INEFFECTIVE [None]
  - DYSPEPSIA [None]
  - DYSPNOEA [None]
  - EMOTIONAL DISTRESS [None]
  - HYPERHIDROSIS [None]
  - INJURY [None]
  - INTERVERTEBRAL DISC DISPLACEMENT [None]
  - MUSCLE CRAMP [None]
  - MUSCULOSKELETAL CHEST PAIN [None]
  - MYALGIA [None]
  - MYOCARDIAL INFARCTION [None]
  - PAIN IN EXTREMITY [None]
  - PALPITATIONS [None]
  - PRODUCTIVE COUGH [None]
  - PYREXIA [None]
  - SCIATICA [None]
  - SWELLING [None]
  - TREATMENT NONCOMPLIANCE [None]
  - VARICOSE VEIN [None]
